FAERS Safety Report 7342013-6 (Version None)
Quarter: 2011Q1

REPORT INFORMATION
  Report Type: 
  Country: None (occurrence: None)
  Receive Date: 20110309
  Receipt Date: 20110302
  Transmission Date: 20110831
  Serious: Yes (Other)
  Sender: FDA-Public Use
  Company Number: US-US-EMD SERONO, INC.-7000935

PATIENT
  Sex: Female
  Weight: 72 kg

DRUGS (7)
  1. REBIF [Suspect]
     Route: 058
     Dates: start: 20080125
  2. UNSPECIFIED NASAL SPRAY [Concomitant]
     Indication: SEASONAL ALLERGY
  3. PAROXETINE [Concomitant]
     Indication: DEPRESSION
  4. CALCIUM WITH VITAMIN D [Concomitant]
  5. LISINOPRIL [Concomitant]
     Indication: HYPERTENSION
  6. UNSPECIFIED ALLERGY MEDICATION [Concomitant]
     Indication: SEASONAL ALLERGY
  7. REBIF [Suspect]
     Indication: MULTIPLE SCLEROSIS
     Route: 058
     Dates: start: 20070319

REACTIONS (8)
  - CHOLELITHIASIS [None]
  - DIABETES MELLITUS [None]
  - INJECTION SITE PAIN [None]
  - PROCEDURAL PAIN [None]
  - PAIN [None]
  - FATIGUE [None]
  - OVARIAN CANCER [None]
  - INSOMNIA [None]
